FAERS Safety Report 8422631-4 (Version None)
Quarter: 2012Q2

REPORT INFORMATION
  Report Type: 
  Country: None (occurrence: None)
  Receive Date: 20120608
  Receipt Date: 20120606
  Transmission Date: 20120825
  Serious: Yes (Death, Hospitalization)
  Sender: FDA-Public Use
  Company Number: GB-ROCHE-1060146

PATIENT
  Sex: Female

DRUGS (1)
  1. LUCENTIS [Suspect]
     Indication: PRODUCT USED FOR UNKNOWN INDICATION
     Route: 050
     Dates: start: 20091230, end: 20100706

REACTIONS (4)
  - POST PROCEDURAL COMPLICATION [None]
  - MYOCARDIAL INFARCTION [None]
  - ARTERIAL INJURY [None]
  - HAEMORRHAGE [None]
